FAERS Safety Report 7710811-2 (Version None)
Quarter: 2011Q3

REPORT INFORMATION
  Report Type: 
  Country: None (occurrence: None)
  Receive Date: 20110825
  Receipt Date: 20110811
  Transmission Date: 20111222
  Serious: Yes (Other)
  Sender: FDA-Public Use
  Company Number: US-BAYER-2011-073887

PATIENT
  Sex: Female

DRUGS (1)
  1. ASPIRIN [Suspect]
     Indication: TOOTHACHE
     Dosage: 2 DF, BID

REACTIONS (3)
  - PAIN [None]
  - VAGINAL HAEMORRHAGE [None]
  - BODY TEMPERATURE DECREASED [None]
